FAERS Safety Report 9687606 (Version 1)
Quarter: 2013Q4

REPORT INFORMATION
  Report Type: Spontaneous
  Country: US (occurrence: None)
  Receive Date: 20131113
  Receipt Date: 20131113
  Transmission Date: 20140711
  Serious: Yes (Hospitalization)
  Sender: FDA-Public Use
  Company Number: None

PATIENT
  Age: 58 Year
  Sex: Male
  Weight: 83.01 kg

DRUGS (1)
  1. TELAPREVIR [Suspect]
     Route: 048
     Dates: start: 20110822, end: 20111101

REACTIONS (1)
  - Drug reaction with eosinophilia and systemic symptoms [None]
